FAERS Safety Report 9309050 (Version 1)
Quarter: 2013Q2

REPORT INFORMATION
  Report Type: Spontaneous
  Country: US (occurrence: US)
  Receive Date: 20130524
  Receipt Date: 20130524
  Transmission Date: 20140414
  Serious: No
  Sender: FDA-Public Use
  Company Number: US-009507513-1305USA013416

PATIENT
  Sex: 0

DRUGS (1)
  1. EMEND [Suspect]
     Route: 042

REACTIONS (1)
  - Injection site extravasation [Unknown]
